FAERS Safety Report 20814772 (Version 3)
Quarter: 2023Q1

REPORT INFORMATION
  Report Type: Report from Study
  Country: FR (occurrence: None)
  Receive Date: 20220511
  Receipt Date: 20230302
  Transmission Date: 20230418
  Serious: Yes (Hospitalization)
  Sender: FDA-Public Use
  Company Number: FR-ROCHE-3090815

PATIENT
  Sex: Female
  Weight: 64 kg

DRUGS (19)
  1. VENETOCLAX [Suspect]
     Active Substance: VENETOCLAX
     Indication: Acute myeloid leukaemia
     Route: 065
  2. EPIRUBICIN [Suspect]
     Active Substance: EPIRUBICIN
     Indication: Acute myeloid leukaemia
     Route: 042
     Dates: start: 20200819, end: 20201021
  3. SACITUZUMAB GOVITECAN [Suspect]
     Active Substance: SACITUZUMAB GOVITECAN
     Indication: Triple negative breast cancer
     Route: 042
     Dates: start: 20211227, end: 20220103
  4. SACITUZUMAB GOVITECAN [Suspect]
     Active Substance: SACITUZUMAB GOVITECAN
     Route: 042
     Dates: start: 202201, end: 202207
  5. SACITUZUMAB GOVITECAN [Suspect]
     Active Substance: SACITUZUMAB GOVITECAN
     Route: 065
     Dates: start: 20220706, end: 20220706
  6. SACITUZUMAB GOVITECAN [Suspect]
     Active Substance: SACITUZUMAB GOVITECAN
     Route: 065
     Dates: start: 20220812, end: 20220812
  7. SACITUZUMAB GOVITECAN [Suspect]
     Active Substance: SACITUZUMAB GOVITECAN
     Route: 065
     Dates: start: 20220819, end: 20220819
  8. SACITUZUMAB GOVITECAN [Suspect]
     Active Substance: SACITUZUMAB GOVITECAN
     Route: 065
     Dates: start: 20221013, end: 20221013
  9. SACITUZUMAB GOVITECAN [Suspect]
     Active Substance: SACITUZUMAB GOVITECAN
     Route: 065
     Dates: start: 20221020, end: 20221020
  10. SACITUZUMAB GOVITECAN [Suspect]
     Active Substance: SACITUZUMAB GOVITECAN
     Route: 065
     Dates: start: 20221103, end: 20221103
  11. SACITUZUMAB GOVITECAN [Suspect]
     Active Substance: SACITUZUMAB GOVITECAN
     Route: 065
     Dates: start: 20221110, end: 20221110
  12. PACLITAXEL [Concomitant]
     Active Substance: PACLITAXEL
     Indication: Neoadjuvant therapy
  13. PACLITAXEL [Concomitant]
     Active Substance: PACLITAXEL
     Indication: Adjuvant therapy
  14. PACLITAXEL [Concomitant]
     Active Substance: PACLITAXEL
     Indication: Chemotherapy
  15. CARBOPLATIN [Concomitant]
     Active Substance: CARBOPLATIN
     Indication: Adjuvant therapy
  16. CARBOPLATIN [Concomitant]
     Active Substance: CARBOPLATIN
     Indication: Chemotherapy
  17. ERIBULIN [Concomitant]
     Active Substance: ERIBULIN
     Indication: Chemotherapy
  18. ERIBULIN [Concomitant]
     Active Substance: ERIBULIN
     Indication: Neoadjuvant therapy
  19. VIDAZA [Concomitant]
     Active Substance: AZACITIDINE

REACTIONS (1)
  - Acute myeloid leukaemia [Not Recovered/Not Resolved]

NARRATIVE: CASE EVENT DATE: 20220204
